FAERS Safety Report 11453032 (Version 1)
Quarter: 2015Q3

REPORT INFORMATION
  Report Type: Spontaneous
  Country: US (occurrence: US)
  Receive Date: 20150831
  Receipt Date: 20150831
  Transmission Date: 20151125
  Serious: No
  Sender: FDA-Public Use
  Company Number: US-ELI_LILLY_AND_COMPANY-US200910007564

PATIENT
  Age: 43 Year
  Sex: Female

DRUGS (6)
  1. LYRICA [Concomitant]
     Active Substance: PREGABALIN
  2. NORCO [Concomitant]
     Active Substance: ACETAMINOPHEN\HYDROCODONE BITARTRATE
  3. LUNESTA [Concomitant]
     Active Substance: ESZOPICLONE
  4. CELEBREX [Concomitant]
     Active Substance: CELECOXIB
  5. SKELAXIN [Concomitant]
     Active Substance: METAXALONE
  6. CYMBALTA [Suspect]
     Active Substance: DULOXETINE HYDROCHLORIDE
     Indication: PAIN
     Dosage: 60 MG, DAILY (1/D)
     Route: 048

REACTIONS (2)
  - Off label use [Recovered/Resolved]
  - Dizziness [Unknown]
